FAERS Safety Report 19880653 (Version 2)
Quarter: 2021Q4

REPORT INFORMATION
  Report Type: Spontaneous
  Country: US (occurrence: US)
  Receive Date: 20210924
  Receipt Date: 20211001
  Transmission Date: 20220304
  Serious: No
  Sender: FDA-Public Use
  Company Number: US-TAKEDA-2021TUS059137

PATIENT
  Age: 74 Year
  Sex: Male
  Weight: 104 kg

DRUGS (2)
  1. COLCRYS [Suspect]
     Active Substance: COLCHICINE
     Indication: Cardiac disorder
     Dosage: 0.6 MILLIGRAM, QD
     Route: 065
  2. COLCRYS [Suspect]
     Active Substance: COLCHICINE
     Indication: Inflammation

REACTIONS (2)
  - Product use in unapproved indication [Unknown]
  - Diarrhoea [Unknown]
